FAERS Safety Report 5242411-0 (Version None)
Quarter: 2007Q1

REPORT INFORMATION
  Report Type: 
  Country: None (occurrence: None)
  Receive Date: 20070221
  Receipt Date: 20070215
  Transmission Date: 20070707
  Serious: Yes (Disabling)
  Sender: FDA-Public Use
  Company Number: BE-BRISTOL-MYERS SQUIBB COMPANY-13679543

PATIENT
  Sex: Male

DRUGS (1)
  1. KENACORT [Suspect]
     Route: 031

REACTIONS (1)
  - EYE EXCISION [None]
